FAERS Safety Report 6782478-1 (Version None)
Quarter: 2010Q2

REPORT INFORMATION
  Report Type: 
  Country: None (occurrence: None)
  Receive Date: 20100616
  Receipt Date: 20100604
  Transmission Date: 20101027
  Serious: Yes (Hospitalization)
  Sender: FDA-Public Use
  Company Number: 013650

PATIENT
  Age: 27 Year
  Sex: Male

DRUGS (1)
  1. CERTOLIZUMAB PEGOL [Suspect]
     Indication: CROHN'S DISEASE

REACTIONS (8)
  - ABDOMINAL ABSCESS [None]
  - ABDOMINAL PAIN [None]
  - ABSCESS [None]
  - CROHN'S DISEASE [None]
  - DIARRHOEA [None]
  - FISTULA [None]
  - PYREXIA [None]
  - VOMITING [None]
